FAERS Safety Report 8803413 (Version 1)
Quarter: 2012Q4

REPORT INFORMATION
  Report Type: 
  Country: US (occurrence: US)
  Receive Date: 20120924
  Receipt Date: 20120924
  Transmission Date: 20130627
  Serious: Yes (Hospitalization)
  Sender: FDA-Public Use
  Company Number: US-009507513-1201USA03938

PATIENT
  Age: 62 Year
  Sex: Female
  Weight: 102.4 kg

DRUGS (7)
  1. DECADRON [Suspect]
     Indication: MULTIPLE MYELOMA
     Dosage: Day of Velcade, and the day following Velcade
     Route: 041
     Dates: start: 20110711
  2. VELCADE [Suspect]
     Indication: MULTIPLE MYELOMA
     Dosage: dose amount 1.3 Days 1, 4, 8 and 11
     Route: 041
     Dates: start: 20110711
  3. VALTREX [Concomitant]
     Dosage: 500 mg, bid
     Route: 048
  4. ZOFRAN [Concomitant]
     Indication: NAUSEA
     Dosage: 8 mg, q8h
     Route: 048
  5. ZOFRAN [Concomitant]
     Indication: VOMITING
  6. PHENERGAN (PROMETHAZINE HYDROCHLORIDE) [Concomitant]
     Indication: NAUSEA
     Dosage: 25 mg, q6h
     Route: 048
  7. PHENERGAN (PROMETHAZINE HYDROCHLORIDE) [Concomitant]
     Indication: VOMITING

REACTIONS (2)
  - Febrile neutropenia [Recovered/Resolved]
  - Diarrhoea [Recovering/Resolving]
